FAERS Safety Report 17767457 (Version 3)
Quarter: 2021Q2

REPORT INFORMATION
  Report Type: Report from Study
  Country: US (occurrence: US)
  Receive Date: 20200511
  Receipt Date: 20210504
  Transmission Date: 20210716
  Serious: No
  Sender: FDA-Public Use
  Company Number: NVSC2020US126426

PATIENT
  Sex: Male

DRUGS (2)
  1. COSENTYX [Suspect]
     Active Substance: SECUKINUMAB
     Indication: PSORIASIS
     Dosage: 300 MG, QMO
     Route: 058
  2. COSENTYX [Suspect]
     Active Substance: SECUKINUMAB
     Dosage: 300 MG, Q4W
     Route: 058

REACTIONS (6)
  - Psoriasis [Unknown]
  - Product dose omission issue [Unknown]
  - Drug ineffective [Unknown]
  - Eczema [Unknown]
  - Arthralgia [Unknown]
  - Arthritis [Unknown]
